FAERS Safety Report 6103755-3 (Version None)
Quarter: 2009Q1

REPORT INFORMATION
  Report Type: 
  Country: None (occurrence: None)
  Receive Date: 20090302
  Receipt Date: 20090218
  Transmission Date: 20090719
  Serious: No
  Sender: FDA-Public Use
  Company Number: 2009-191773-NL

PATIENT
  Age: 72 Year
  Sex: Male

DRUGS (5)
  1. DEXAMETHASONE [Suspect]
     Indication: MULTIPLE MYELOMA
     Dosage: DF
     Route: 048
  2. CYCLOPHOSPHAMIDE [Concomitant]
  3. DOXORUBICIN HCL [Concomitant]
  4. VINCRISTINE SULFATE [Concomitant]
  5. ZOLEDRONIC ACID [Concomitant]

REACTIONS (3)
  - DIABETIC HYPEROSMOLAR COMA [None]
  - FEBRILE NEUTROPENIA [None]
  - INAPPROPRIATE ANTIDIURETIC HORMONE SECRETION [None]
